FAERS Safety Report 6638170-7 (Version None)
Quarter: 2010Q1

REPORT INFORMATION
  Report Type: 
  Country: None (occurrence: None)
  Receive Date: 20100317
  Receipt Date: 20100309
  Transmission Date: 20100710
  Serious: No
  Sender: FDA-Public Use
  Company Number: US-ASTRAZENECA-2010SE10152

PATIENT
  Sex: Female

DRUGS (4)
  1. SEROQUEL [Suspect]
     Indication: BIPOLAR DISORDER
     Route: 048
     Dates: start: 20080101
  2. LEVASTATIN [Concomitant]
  3. ATIVAN [Concomitant]
  4. MEDICATION FOR SHINGLES [Concomitant]
     Indication: HERPES ZOSTER

REACTIONS (5)
  - ANAEMIA [None]
  - HYPERCHOLESTEROLAEMIA [None]
  - HYPERPROLACTINAEMIA [None]
  - HYPERTRIGLYCERIDAEMIA [None]
  - LEUKOPENIA [None]
